FAERS Safety Report 24010657 (Version 2)
Quarter: 2024Q3

REPORT INFORMATION
  Report Type: Report from Study
  Country: US (occurrence: US)
  Receive Date: 20240625
  Receipt Date: 20240913
  Transmission Date: 20241017
  Serious: Yes (Other)
  Sender: AEGERION
  Company Number: US-AMRYT PHARMACEUTICALS DAC-AEGR007140

PATIENT
  Sex: Female
  Weight: 70.39 kg

DRUGS (1)
  1. FILSUVEZ [Suspect]
     Active Substance: BIRCH TRITERPENES
     Indication: Epidermolysis bullosa
     Dosage: Q81.9 - EPIDERMOLYSIS BULLOSA, UNSPECIFIED
     Route: 061
     Dates: start: 20240508

REACTIONS (5)
  - Diabetes mellitus [Unknown]
  - Blister [Unknown]
  - Erythema [Unknown]
  - Impaired healing [Recovering/Resolving]
  - Wound complication [Recovering/Resolving]
